FAERS Safety Report 24621397 (Version 1)
Quarter: 2024Q4

REPORT INFORMATION
  Report Type: Spontaneous
  Country: US (occurrence: US)
  Receive Date: 20241114
  Receipt Date: 20241114
  Transmission Date: 20250114
  Serious: No
  Sender: BRISTOL-MYERS SQUIBB COMPANY
  Company Number: US-BRISTOL-MYERS SQUIBB COMPANY-2024-178514

PATIENT
  Age: 69 Year
  Sex: Female

DRUGS (1)
  1. ORENCIA [Suspect]
     Active Substance: ABATACEPT
     Indication: Sarcoidosis
     Route: 058
     Dates: start: 202408

REACTIONS (4)
  - Hypertension [Unknown]
  - Headache [Unknown]
  - Insomnia [Unknown]
  - Off label use [Unknown]
